FAERS Safety Report 20203315 (Version 1)
Quarter: 2021Q4

REPORT INFORMATION
  Report Type: Other
  Country: CN (occurrence: None)
  Receive Date: 20211218
  Receipt Date: 20211218
  Transmission Date: 20220304
  Serious: Yes (Death, Other)
  Sender: FDA-Public Use
  Company Number: CN-ROCHE-2981502

PATIENT
  Age: 60 Year
  Sex: Female

DRUGS (3)
  1. BEVACIZUMAB [Suspect]
     Active Substance: BEVACIZUMAB
     Indication: Endometrial cancer
     Dosage: CUMULATIVE DOSAGE 0.8 G
     Route: 065
  2. DOCETAXEL [Concomitant]
     Active Substance: DOCETAXEL
  3. CYCLOPHOSPHAMIDE [Concomitant]
     Active Substance: CYCLOPHOSPHAMIDE

REACTIONS (5)
  - Gastrointestinal perforation [Unknown]
  - Myelosuppression [Unknown]
  - Peritonitis [Unknown]
  - Sepsis [Unknown]
  - Multiple organ dysfunction syndrome [Fatal]
